FAERS Safety Report 13405333 (Version 2)
Quarter: 2017Q2

REPORT INFORMATION
  Report Type: Spontaneous
  Country: HU (occurrence: HU)
  Receive Date: 20170405
  Receipt Date: 20170506
  Transmission Date: 20170830
  Serious: Yes (Other)
  Sender: FDA-Public Use
  Company Number: HU-AMGEN-HUNSP2017012080

PATIENT
  Sex: Female
  Weight: 2.75 kg

DRUGS (4)
  1. ENBREL [Suspect]
     Active Substance: ETANERCEPT
     Indication: EXPOSURE DURING PREGNANCY
     Dosage: 50 MG, WEEKLY
     Route: 064
     Dates: start: 2005, end: 20161222
  2. NORMIX [Concomitant]
     Active Substance: RIFAXIMIN
     Indication: EXPOSURE DURING PREGNANCY
     Dosage: 200 MG FOR 1 WEEK
     Route: 064
     Dates: start: 20161121
  3. FRONTIN [Concomitant]
     Active Substance: ALPRAZOLAM
     Indication: EXPOSURE DURING PREGNANCY
     Dosage: 0.25 MG, AS NEEDED
     Route: 064
  4. AUGMENTIN [Concomitant]
     Active Substance: AMOXICILLIN\CLAVULANATE POTASSIUM
     Indication: EXPOSURE DURING PREGNANCY
     Dosage: UNK
     Route: 064
     Dates: start: 20161103

REACTIONS (2)
  - Foetal monitoring abnormal [Recovered/Resolved]
  - Maternal exposure during pregnancy [Recovered/Resolved]

NARRATIVE: CASE EVENT DATE: 2016
